FAERS Safety Report 10018104 (Version 1)
Quarter: 2014Q1

REPORT INFORMATION
  Report Type: Spontaneous
  Country: US (occurrence: US)
  Receive Date: 20140318
  Receipt Date: 20140318
  Transmission Date: 20141002
  Serious: No
  Sender: FDA-Public Use
  Company Number: US-BRISTOL-MYERS SQUIBB COMPANY-18966226

PATIENT
  Age: 80 Year
  Sex: Male
  Weight: 77.1 kg

DRUGS (2)
  1. ERBITUX SOLN FOR INF [Suspect]
     Indication: COLON CANCER
     Dosage: LAST INF: 28MAY2013.
     Dates: start: 2013
  2. IRINOTECAN [Suspect]
     Indication: COLON CANCER

REACTIONS (4)
  - Rash [Unknown]
  - Pruritus [Recovered/Resolved]
  - Pain in extremity [Unknown]
  - Skin disorder [Unknown]
